FAERS Safety Report 14918369 (Version 1)
Quarter: 2018Q2

REPORT INFORMATION
  Report Type: Spontaneous
  Country: US (occurrence: US)
  Receive Date: 20180502
  Receipt Date: 20180502
  Transmission Date: 20180711
  Serious: No
  Sender: FDA-Public Use
  Company Number: None

PATIENT
  Age: 73 Year
  Sex: Female

DRUGS (1)
  1. OCTREOTIDE PFS 50MCG/ML [Suspect]
     Active Substance: OCTREOTIDE ACETATE
     Dosage: OTHER STRENGTH:50 UG/ML;OTHER DOSE:50MCG/ML PI;OTHER FREQUENCY:2ML (2 PFS) S;?
     Route: 058

REACTIONS (5)
  - Therapy change [None]
  - Injection site pain [None]
  - Drug dispensing error [None]
  - Drug ineffective [None]
  - Incorrect dose administered [None]

NARRATIVE: CASE EVENT DATE: 20180502
